FAERS Safety Report 9379331 (Version 1)
Quarter: 2013Q2

REPORT INFORMATION
  Report Type: Spontaneous
  Country: US (occurrence: None)
  Receive Date: 20130626
  Receipt Date: 20130626
  Transmission Date: 20140414
  Serious: Yes (Death)
  Sender: FDA-Public Use
  Company Number: ACO_37038_2013

PATIENT
  Sex: Female

DRUGS (9)
  1. AMPYRA (DALFAMPRIDINE) TABLET, 10MG [Suspect]
     Indication: PRODUCT USED FOR UNKNOWN INDICATION
     Route: 048
  2. PREMARIN (ESTROGENS CONJUGATED) [Concomitant]
  3. RITALIN (METHYLPHENIDATE HYDROCHLORIDE) [Concomitant]
  4. LORAZEPAM (LORAZEPAM) [Concomitant]
  5. FLUOXETINE (FLUOXETINE HYDROCHLORIDE) [Concomitant]
  6. HYDROCODONE BITARTRATE AND ACETAMINOPHEN (HYDROCODONE BITARTRATE, PARACETAMOL) [Concomitant]
  7. NEXIUM (ESOMEPRAZOLE MAGNESIUM) [Concomitant]
  8. CRESTOR (ROSUVASTATIN CALCIUM) [Concomitant]
  9. FOSAMAX (ALENDRONATE SODIUM) [Concomitant]

REACTIONS (1)
  - Death [None]
